FAERS Safety Report 17489332 (Version 1)
Quarter: 2020Q1

REPORT INFORMATION
  Report Type: Spontaneous
  Country: US (occurrence: US)
  Receive Date: 20200303
  Receipt Date: 20200303
  Transmission Date: 20200409
  Serious: Yes (Death)
  Sender: FDA-Public Use
  Company Number: US-PFIZER INC-2020093840

PATIENT
  Age: 84 Year
  Sex: Male

DRUGS (1)
  1. VYNDAQEL [Suspect]
     Active Substance: TAFAMIDIS MEGLUMINE
     Dosage: 61 MG 4 PER DAY
     Dates: start: 201908

REACTIONS (2)
  - Cardiac amyloidosis [Fatal]
  - Overdose [Fatal]

NARRATIVE: CASE EVENT DATE: 201908
